FAERS Safety Report 5592399-8 (Version None)
Quarter: 2008Q1

REPORT INFORMATION
  Report Type: 
  Country: None (occurrence: None)
  Receive Date: 20080115
  Receipt Date: 20080107
  Transmission Date: 20080703
  Serious: Yes (Other)
  Sender: FDA-Public Use
  Company Number: FI-ABBOTT-07P-055-0430560-00

PATIENT

DRUGS (3)
  1. VALPROIC ACID [Suspect]
     Indication: MYELODYSPLASTIC SYNDROME
     Route: 048
  2. ISOTRETINOIN [Concomitant]
     Indication: MYELODYSPLASTIC SYNDROME
  3. VD3 [Concomitant]
     Indication: MYELODYSPLASTIC SYNDROME

REACTIONS (1)
  - PNEUMONITIS [None]
